FAERS Safety Report 25913321 (Version 1)
Quarter: 2025Q4

REPORT INFORMATION
  Report Type: Spontaneous
  Country: UA (occurrence: UA)
  Receive Date: 20251013
  Receipt Date: 20251013
  Transmission Date: 20260118
  Serious: Yes (Hospitalization, Other)
  Sender: MERCK SHARP & DOHME LLC
  Company Number: UA-009507513-2335626

PATIENT
  Age: 43 Year
  Sex: Male

DRUGS (2)
  1. KEYTRUDA [Suspect]
     Active Substance: PEMBROLIZUMAB
     Indication: Colorectal cancer
     Dosage: 28 INJECTIONS, WITH A GOOD RESPONSE
     Dates: start: 2021
  2. KEYTRUDA [Suspect]
     Active Substance: PEMBROLIZUMAB
     Indication: Colorectal cancer
     Dates: start: 20250911

REACTIONS (2)
  - Hepatotoxicity [Unknown]
  - Colorectal cancer recurrent [Unknown]

NARRATIVE: CASE EVENT DATE: 20250101
